FAERS Safety Report 4322121-4 (Version None)
Quarter: 2004Q1

REPORT INFORMATION
  Report Type: 
  Country: None (occurrence: None)
  Receive Date: 20040319
  Receipt Date: 20020809
  Transmission Date: 20041129
  Serious: Yes (Death)
  Sender: FDA-Public Use
  Company Number: 2002IM000559

PATIENT
  Age: 72 Year
  Sex: Male

DRUGS (1)
  1. ACTIMMUNE [Suspect]
     Indication: INTERSTITIAL LUNG DISEASE
     Dosage: 200 UG;TIW; SUBCUTANEOUS
     Route: 058
     Dates: start: 20010601, end: 20020601

REACTIONS (2)
  - ACUTE MYOCARDIAL INFARCTION [None]
  - FATIGUE [None]
